FAERS Safety Report 6207555-5 (Version None)
Quarter: 2009Q2

REPORT INFORMATION
  Report Type: 
  Country: None (occurrence: None)
  Receive Date: 20090528
  Receipt Date: 20090520
  Transmission Date: 20091009
  Serious: Yes (Other)
  Sender: FDA-Public Use
  Company Number: PHHY2009MX18795

PATIENT
  Age: 76 Year
  Sex: Male

DRUGS (1)
  1. EXELON [Suspect]
     Indication: DEMENTIA ALZHEIMER'S TYPE
     Dosage: 1 PATCH/DAY
     Route: 062
     Dates: start: 20080401

REACTIONS (4)
  - GENERAL PHYSICAL HEALTH DETERIORATION [None]
  - LOSS OF CONTROL OF LEGS [None]
  - MOTOR DYSFUNCTION [None]
  - MUSCULOSKELETAL STIFFNESS [None]
